FAERS Safety Report 5527172-X (Version None)
Quarter: 2007Q4

REPORT INFORMATION
  Report Type: 
  Country: None (occurrence: None)
  Receive Date: 20071121
  Receipt Date: 20071109
  Transmission Date: 20080405
  Serious: Yes (Other)
  Sender: FDA-Public Use
  Company Number: 2007SP023088

PATIENT
  Age: 73 Year
  Sex: Female

DRUGS (3)
  1. MIRALAX [Suspect]
     Dosage: 1 DF; ONCE; PO
     Route: 048
     Dates: start: 20071108
  2. TOPORAL [Concomitant]
  3. ZOLOFT [Concomitant]

REACTIONS (4)
  - HAEMATOCHEZIA [None]
  - MUCOUS STOOLS [None]
  - MUSCLE SPASMS [None]
  - POLLAKIURIA [None]
